FAERS Safety Report 11968874 (Version 1)
Quarter: 2016Q1

REPORT INFORMATION
  Report Type: Spontaneous
  Country: FR (occurrence: FR)
  Receive Date: 20160128
  Receipt Date: 20160128
  Transmission Date: 20160526
  Serious: Yes (Life-Threatening, Hospitalization)
  Sender: FDA-Public Use
  Company Number: FR-ASTRAZENECA-2016SE08212

PATIENT
  Age: 15774 Day
  Sex: Female

DRUGS (9)
  1. THERALENE [Suspect]
     Active Substance: TRIMEPRAZINE
     Dosage: 2 VIALS: SINGLE DOSE
     Route: 048
     Dates: end: 20151214
  2. PROZAC [Suspect]
     Active Substance: FLUOXETINE HYDROCHLORIDE
     Route: 048
     Dates: end: 20151214
  3. SULFARLEM [Suspect]
     Active Substance: ANETHOLTRITHION
     Route: 048
     Dates: end: 20151214
  4. LORMETAZEPAM [Suspect]
     Active Substance: LORMETAZEPAM
     Route: 048
     Dates: end: 20151214
  5. SERESTA [Suspect]
     Active Substance: OXAZEPAM
     Route: 048
     Dates: end: 20151214
  6. NOZINAN [Suspect]
     Active Substance: LEVOMEPROMAZINE
     Route: 048
     Dates: end: 20151214
  7. MOPRAL [Suspect]
     Active Substance: OMEPRAZOLE SODIUM
     Route: 048
     Dates: end: 20151214
  8. LEPTICUR [Suspect]
     Active Substance: TROPATEPINE HYDROCHLORIDE
     Route: 048
     Dates: end: 20151214
  9. MOVICOL [Suspect]
     Active Substance: POLYETHYLENE GLYCOL 3350\POTASSIUM CHLORIDE\SODIUM BICARBONATE\SODIUM CHLORIDE
     Route: 048
     Dates: end: 20151214

REACTIONS (3)
  - Toxicity to various agents [Unknown]
  - Suicide attempt [Unknown]
  - Somnolence [Recovered/Resolved]

NARRATIVE: CASE EVENT DATE: 20151214
